FAERS Safety Report 9057251 (Version 2)
Quarter: 2013Q1

REPORT INFORMATION
  Report Type: Report from Study
  Country: FR (occurrence: FR)
  Receive Date: 20130131
  Receipt Date: 20130306
  Transmission Date: 20140127
  Serious: Yes (Hospitalization)
  Sender: FDA-Public Use
  Company Number: FR-GLAXOSMITHKLINE-B0833434B

PATIENT
  Age: 68 None
  Sex: Female
  Weight: 56 kg

DRUGS (6)
  1. PAZOPANIB [Suspect]
     Indication: NEOPLASM
     Dosage: 36000MG CUMULATIVE DOSE
     Route: 048
     Dates: start: 20120814
  2. CISPLATIN [Suspect]
     Indication: NEOPLASM
     Dosage: 678MG CUMULATIVE DOSE
     Route: 042
     Dates: start: 20120822
  3. ADROVANCE [Concomitant]
     Indication: OSTEOPOROSIS
     Route: 048
     Dates: start: 20130120
  4. PRIMPERAN [Concomitant]
     Indication: NAUSEA
     Dates: start: 201210
  5. FORTIMEL [Concomitant]
     Route: 048
     Dates: start: 20121126
  6. SPASFON [Concomitant]
     Indication: ABDOMINAL PAIN
     Route: 048
     Dates: start: 20120928

REACTIONS (3)
  - Renal failure acute [Not Recovered/Not Resolved]
  - Vomiting [Recovered/Resolved]
  - Nausea [Recovered/Resolved]
